FAERS Safety Report 17600483 (Version 2)
Quarter: 2020Q2

REPORT INFORMATION
  Report Type: Spontaneous
  Country: CA (occurrence: CA)
  Receive Date: 20200330
  Receipt Date: 20200428
  Transmission Date: 20200713
  Serious: Yes (Hospitalization, Other)
  Sender: FDA-Public Use
  Company Number: NVSC2020CA085689

PATIENT
  Age: 53 Year
  Sex: Female
  Weight: 63 kg

DRUGS (17)
  1. TRASTUZUMAB. [Suspect]
     Active Substance: TRASTUZUMAB
     Indication: BREAST CANCER METASTATIC
     Dosage: 342 MG, Q3W
     Route: 042
  2. CISPLATIN. [Concomitant]
     Active Substance: CISPLATIN
     Indication: PRODUCT USED FOR UNKNOWN INDICATION
     Dosage: UNK
     Route: 065
  3. MELATONIN [Concomitant]
     Active Substance: MELATONIN
     Indication: PRODUCT USED FOR UNKNOWN INDICATION
     Dosage: UNK
     Route: 065
  4. ZINGIBER OFFICINALE [Concomitant]
     Active Substance: GINGER
     Indication: PRODUCT USED FOR UNKNOWN INDICATION
     Dosage: UNK
     Route: 065
  5. AFINITOR [Suspect]
     Active Substance: EVEROLIMUS
     Indication: BREAST CANCER
     Dosage: UNK
     Route: 065
  6. ATIVAN [Concomitant]
     Active Substance: LORAZEPAM
     Indication: PRODUCT USED FOR UNKNOWN INDICATION
     Dosage: UNK
     Route: 065
  7. ZOPICLONE [Concomitant]
     Active Substance: ZOPICLONE
     Indication: PRODUCT USED FOR UNKNOWN INDICATION
     Dosage: UNK
     Route: 065
  8. KADCYLA [Suspect]
     Active Substance: ADO-TRASTUZUMAB EMTANSINE
     Indication: BREAST CANCER METASTATIC
     Dosage: 209 MG, UNKNOWN
     Route: 042
  9. ROSUVASTATIN CALCIUM. [Concomitant]
     Active Substance: ROSUVASTATIN CALCIUM
     Indication: PRODUCT USED FOR UNKNOWN INDICATION
     Dosage: 10 MG
     Route: 065
  10. AMLODIPINE [Concomitant]
     Active Substance: AMLODIPINE BESYLATE
     Indication: PRODUCT USED FOR UNKNOWN INDICATION
     Dosage: UNK
     Route: 065
  11. EXEMESTANE. [Suspect]
     Active Substance: EXEMESTANE
     Indication: PRODUCT USED FOR UNKNOWN INDICATION
     Dosage: UNK
     Route: 065
  12. XELODA [Suspect]
     Active Substance: CAPECITABINE
     Indication: BREAST CANCER
     Dosage: UNK, Q3W
     Route: 048
  13. GEMCITABINE. [Concomitant]
     Active Substance: GEMCITABINE
     Indication: PRODUCT USED FOR UNKNOWN INDICATION
     Dosage: UNK
     Route: 065
  14. PAMIDRONATE DISODIUM. [Concomitant]
     Active Substance: PAMIDRONATE DISODIUM
     Indication: PRODUCT USED FOR UNKNOWN INDICATION
     Dosage: UNK
     Route: 065
  15. KADCYLA [Suspect]
     Active Substance: ADO-TRASTUZUMAB EMTANSINE
     Dosage: 205 MG, Q3W
     Route: 042
  16. SERTRALINE HYDROCHLORIDE. [Concomitant]
     Active Substance: SERTRALINE HYDROCHLORIDE
     Indication: PRODUCT USED FOR UNKNOWN INDICATION
     Dosage: UNK
     Route: 065
  17. ZOMETA [Concomitant]
     Active Substance: ZOLEDRONIC ACID
     Indication: PRODUCT USED FOR UNKNOWN INDICATION
     Dosage: UNK
     Route: 065

REACTIONS (41)
  - Stress [Not Recovered/Not Resolved]
  - Ocular hyperaemia [Not Recovered/Not Resolved]
  - Candida infection [Not Recovered/Not Resolved]
  - Weight decreased [Not Recovered/Not Resolved]
  - Vomiting [Not Recovered/Not Resolved]
  - Stomatitis [Not Recovered/Not Resolved]
  - Liver disorder [Not Recovered/Not Resolved]
  - Myalgia [Not Recovered/Not Resolved]
  - Nephrolithiasis [Not Recovered/Not Resolved]
  - Emotional disorder [Not Recovered/Not Resolved]
  - Contusion [Not Recovered/Not Resolved]
  - Ear pain [Not Recovered/Not Resolved]
  - Inflammation [Not Recovered/Not Resolved]
  - Computerised tomogram abnormal [Not Recovered/Not Resolved]
  - Anxiety [Not Recovered/Not Resolved]
  - Back pain [Not Recovered/Not Resolved]
  - Blood cholesterol increased [Not Recovered/Not Resolved]
  - Blood pressure increased [Not Recovered/Not Resolved]
  - Headache [Not Recovered/Not Resolved]
  - Tumour marker abnormal [Not Recovered/Not Resolved]
  - Asthenia [Not Recovered/Not Resolved]
  - Influenza [Not Recovered/Not Resolved]
  - Weight increased [Not Recovered/Not Resolved]
  - Hypertension [Not Recovered/Not Resolved]
  - Cough [Not Recovered/Not Resolved]
  - Hypersensitivity [Not Recovered/Not Resolved]
  - Infusion related reaction [Not Recovered/Not Resolved]
  - Water intoxication [Not Recovered/Not Resolved]
  - Diarrhoea [Not Recovered/Not Resolved]
  - Oral herpes [Not Recovered/Not Resolved]
  - Nausea [Not Recovered/Not Resolved]
  - Fatigue [Not Recovered/Not Resolved]
  - Pain [Not Recovered/Not Resolved]
  - Tumour marker increased [Not Recovered/Not Resolved]
  - Psychotic disorder [Not Recovered/Not Resolved]
  - Sinusitis [Not Recovered/Not Resolved]
  - Complication associated with device [Not Recovered/Not Resolved]
  - Blood pressure systolic increased [Not Recovered/Not Resolved]
  - Nervous system disorder [Not Recovered/Not Resolved]
  - Abdominal pain [Not Recovered/Not Resolved]
  - Nasopharyngitis [Not Recovered/Not Resolved]
